FAERS Safety Report 15416476 (Version 3)
Quarter: 2018Q4

REPORT INFORMATION
  Report Type: Report from Study
  Country: CN (occurrence: CN)
  Receive Date: 20180924
  Receipt Date: 20181109
  Transmission Date: 20190204
  Serious: Yes (Other)
  Sender: FDA-Public Use
  Company Number: PHHY2018CN098765

PATIENT
  Age: 36 Year
  Sex: Female

DRUGS (23)
  1. NORADRENALINE [Concomitant]
     Active Substance: NOREPINEPHRINE
     Indication: BLOOD PRESSURE ABNORMAL
     Dosage: UNK, IV PUSH BY MICROPUMP, ALWAYS
     Route: 042
     Dates: start: 20180822, end: 20180830
  2. HYDROTALCITE [Concomitant]
     Active Substance: HYDROTALCITE
     Indication: PROPHYLAXIS
  3. OMEPRAZOLE. [Concomitant]
     Active Substance: OMEPRAZOLE
     Indication: GASTRIC PH DECREASED
     Dosage: UNK, PRN
     Route: 042
     Dates: start: 20180823, end: 20180823
  4. MYFORTIC [Suspect]
     Active Substance: MYCOPHENOLATE SODIUM
     Dosage: 1440 MG, QD
     Route: 048
     Dates: start: 20180830, end: 20180902
  5. BASILIXIMAB [Suspect]
     Active Substance: BASILIXIMAB
     Indication: RENAL TRANSPLANT
     Dosage: 20 MG, QD
     Route: 065
     Dates: start: 20180822, end: 20180822
  6. MIDODRINE HYDROCHLORIDE. [Concomitant]
     Active Substance: MIDODRINE HYDROCHLORIDE
     Indication: HYPOTENSION
     Dosage: 2.5 MG, TID
     Route: 048
     Dates: start: 20180830, end: 20180910
  7. CASPOFUNGIN ACETATE. [Concomitant]
     Active Substance: CASPOFUNGIN ACETATE
     Dosage: 50 MG, QD
     Route: 042
     Dates: start: 20180823, end: 20180829
  8. CALCIUM [Concomitant]
     Active Substance: CALCIUM
     Indication: PROPHYLAXIS
     Dosage: UNK
     Route: 042
     Dates: start: 20180823, end: 20180823
  9. SOLIFENACIN [Concomitant]
     Active Substance: SOLIFENACIN
     Indication: URINARY INCONTINENCE
     Dosage: 5 MG, QD
     Route: 048
     Dates: start: 20180826, end: 20180901
  10. CASPOFUNGIN ACETATE. [Concomitant]
     Active Substance: CASPOFUNGIN ACETATE
     Indication: INFECTION PROPHYLAXIS
     Dosage: UNK, PRN
     Route: 042
     Dates: start: 20180823, end: 20180823
  11. OMEPRAZOLE. [Concomitant]
     Active Substance: OMEPRAZOLE
     Dosage: 20 MG, QD
     Route: 048
     Dates: start: 20180826, end: 20180903
  12. SOLIFENACIN [Concomitant]
     Active Substance: SOLIFENACIN
     Indication: POLLAKIURIA
  13. MYFORTIC [Suspect]
     Active Substance: MYCOPHENOLATE SODIUM
     Indication: PROPHYLAXIS
     Dosage: 2160 MG, QD
     Route: 048
     Dates: start: 20180823, end: 20180829
  14. HEPATITIS B IMMUNE GLOBULIN [Concomitant]
     Active Substance: HUMAN HEPATITIS B VIRUS IMMUNE GLOBULIN
     Indication: PROPHYLAXIS
     Dosage: UNK UNK, PRN
     Route: 042
     Dates: start: 20180823, end: 20180823
  15. NORADRENALINE [Concomitant]
     Active Substance: NOREPINEPHRINE
     Dosage: 2 MG, PRN
     Route: 042
     Dates: start: 20180824, end: 20180824
  16. HYDROTALCITE [Concomitant]
     Active Substance: HYDROTALCITE
     Indication: GASTRIC PH DECREASED
     Dosage: 1000 MG, QD
     Route: 048
     Dates: start: 20180823
  17. FUROSEMIDE. [Concomitant]
     Active Substance: FUROSEMIDE
     Indication: DIURETIC THERAPY
     Dosage: 20 MG, PRN
     Route: 042
     Dates: start: 20180823, end: 20180823
  18. MOSAPRIDE CITRATE [Concomitant]
     Active Substance: MOSAPRIDE CITRATE
     Indication: GASTROINTESTINAL MOTILITY DISORDER
     Dosage: 5 MG, TID
     Route: 048
     Dates: start: 20180825, end: 20180903
  19. MYFORTIC [Suspect]
     Active Substance: MYCOPHENOLATE SODIUM
     Indication: RENAL TRANSPLANT
     Dosage: 1440 MG, QD
     Route: 048
     Dates: start: 20180822, end: 20180822
  20. OMEPRAZOLE. [Concomitant]
     Active Substance: OMEPRAZOLE
     Indication: PROPHYLAXIS
     Dosage: 40 MG, QD
     Route: 042
     Dates: start: 20180823, end: 20180826
  21. SULPERAZON [Concomitant]
     Active Substance: CEFOPERAZONE SODIUM\SULBACTAM SODIUM
     Indication: INFECTION PROPHYLAXIS
     Dosage: 2 G, Q12H
     Route: 042
     Dates: start: 20180823, end: 20180830
  22. SOLIFENACIN [Concomitant]
     Active Substance: SOLIFENACIN
     Indication: HYPERTONIC BLADDER
  23. SOLIFENACIN [Concomitant]
     Active Substance: SOLIFENACIN
     Indication: MICTURITION URGENCY

REACTIONS (5)
  - Abdominal distension [Recovered/Resolved]
  - Overdose [Recovered/Resolved with Sequelae]
  - Urinary retention [Recovered/Resolved]
  - Complications of transplanted kidney [Recovered/Resolved]
  - Anaemia [Recovered/Resolved with Sequelae]

NARRATIVE: CASE EVENT DATE: 20180823
